FAERS Safety Report 24276345 (Version 2)
Quarter: 2024Q4

REPORT INFORMATION
  Report Type: Spontaneous
  Country: US (occurrence: US)
  Receive Date: 20240903
  Receipt Date: 20241005
  Transmission Date: 20250115
  Serious: No
  Sender: JOHNSON AND JOHNSON
  Company Number: US-JNJFOC-20240856336

PATIENT
  Age: 28 Year
  Sex: Male

DRUGS (1)
  1. MENS ROGAINE EXTRA STRENGTH [Suspect]
     Active Substance: MINOXIDIL
     Indication: Alopecia
     Dosage: 1/2 OF DOSE ONCE
     Route: 061
     Dates: start: 20240725, end: 20240802

REACTIONS (5)
  - Application site pain [Unknown]
  - Application site pruritus [Unknown]
  - Underdose [Unknown]
  - Inappropriate schedule of product administration [Unknown]
  - Application site irritation [Unknown]

NARRATIVE: CASE EVENT DATE: 20240725
